FAERS Safety Report 6310445-0 (Version None)
Quarter: 2009Q3

REPORT INFORMATION
  Report Type: 
  Country: None (occurrence: None)
  Receive Date: 20090814
  Receipt Date: 20090803
  Transmission Date: 20100115
  Serious: Yes (Hospitalization, Other)
  Sender: FDA-Public Use
  Company Number: GB-PFIZER INC-2009249997

PATIENT
  Age: 51 Year

DRUGS (1)
  1. SULFASALAZINE [Suspect]
     Indication: RHEUMATOID ARTHRITIS

REACTIONS (4)
  - LIP BLISTER [None]
  - ODYNOPHAGIA [None]
  - OROPHARYNGEAL BLISTERING [None]
  - RASH MACULO-PAPULAR [None]
